FAERS Safety Report 4429971-4 (Version None)
Quarter: 2004Q3

REPORT INFORMATION
  Report Type: 
  Country: None (occurrence: None)
  Receive Date: 20040817
  Receipt Date: 20040805
  Transmission Date: 20050211
  Serious: Yes (Hospitalization)
  Sender: FDA-Public Use
  Company Number: 2004UW16636

PATIENT
  Age: 80 Year
  Sex: Female

DRUGS (12)
  1. SEROQUEL [Suspect]
  2. PROMETHAZINE HCL [Suspect]
  3. REMINYL [Suspect]
     Indication: DEMENTIA ALZHEIMER'S TYPE
     Dosage: 24 MG DAILY PO
     Route: 048
     Dates: start: 20020616, end: 20040310
  4. REMINYL [Suspect]
     Indication: DEMENTIA ALZHEIMER'S TYPE
     Dosage: 4 MG BID PO
     Route: 048
     Dates: start: 20040311
  5. CELEXA [Concomitant]
  6. CARTIA XT [Concomitant]
  7. LIPITOR [Concomitant]
  8. ISOSORBIDE [Concomitant]
  9. LECITHIN [Concomitant]
  10. GLUCOSAMINE [Concomitant]
  11. COLACE [Concomitant]
  12. ASPIRIN [Concomitant]

REACTIONS (11)
  - BLOOD PRESSURE ORTHOSTATIC DECREASED [None]
  - CONFUSIONAL STATE [None]
  - DELIRIUM [None]
  - DIZZINESS [None]
  - DRUG INTERACTION [None]
  - GAIT DISTURBANCE [None]
  - HALLUCINATION, VISUAL [None]
  - MUSCLE TWITCHING [None]
  - NAUSEA [None]
  - NERVOUS SYSTEM DISORDER [None]
  - VOMITING [None]
